FAERS Safety Report 8075906-5 (Version None)
Quarter: 2012Q1

REPORT INFORMATION
  Report Type: 
  Country: None (occurrence: None)
  Receive Date: 20120127
  Receipt Date: 20120119
  Transmission Date: 20120608
  Serious: Yes (Other)
  Sender: FDA-Public Use
  Company Number: US-BAYER-2012-007074

PATIENT
  Sex: Female

DRUGS (2)
  1. YASMIN [Suspect]
     Dosage: UNK
     Dates: start: 20020801, end: 20040501
  2. YAZ [Suspect]
     Dosage: UNK
     Dates: start: 20020801, end: 20040501

REACTIONS (8)
  - CEREBRAL THROMBOSIS [None]
  - INJURY [None]
  - ANXIETY [None]
  - CEREBROVASCULAR ACCIDENT [None]
  - GENERAL PHYSICAL HEALTH DETERIORATION [None]
  - HAEMORRHAGE [None]
  - PAIN [None]
  - EMOTIONAL DISTRESS [None]
